FAERS Safety Report 24296711 (Version 3)
Quarter: 2025Q2

REPORT INFORMATION
  Report Type: Report from Study
  Country: US (occurrence: US)
  Receive Date: 20240909
  Receipt Date: 20250521
  Transmission Date: 20250717
  Serious: Yes (Hospitalization)
  Sender: ABBVIE
  Company Number: US-ABBVIE-5908348

PATIENT
  Sex: Female
  Weight: 91 kg

DRUGS (11)
  1. SKYRIZI [Suspect]
     Active Substance: RISANKIZUMAB-RZAA
     Indication: Crohn^s disease
     Dosage: WEEK 12?FORM STRENGTH: 360MG/2.4M
     Route: 058
     Dates: start: 20230915, end: 20230915
  2. SKYRIZI [Suspect]
     Active Substance: RISANKIZUMAB-RZAA
     Dosage: WEEK 12?FORM STRENGTH: 360MG/2.4ML
     Route: 058
     Dates: start: 202311, end: 202311
  3. SKYRIZI [Suspect]
     Active Substance: RISANKIZUMAB-RZAA
     Dosage: FORM STRENGTH: 360MG/2.4ML
     Route: 058
     Dates: start: 20240918, end: 20240918
  4. SKYRIZI [Suspect]
     Active Substance: RISANKIZUMAB-RZAA
     Dosage: FORM STRENGTH: 360MG/2.4ML
     Route: 058
     Dates: start: 20250507
  5. SKYRIZI [Suspect]
     Active Substance: RISANKIZUMAB-RZAA
     Indication: Crohn^s disease
     Route: 042
     Dates: start: 202306, end: 202306
  6. SKYRIZI [Suspect]
     Active Substance: RISANKIZUMAB-RZAA
     Indication: Crohn^s disease
     Route: 042
  7. SKYRIZI [Suspect]
     Active Substance: RISANKIZUMAB-RZAA
     Indication: Crohn^s disease
     Route: 042
  8. PREDNISONE [Concomitant]
     Active Substance: PREDNISONE
     Indication: Product used for unknown indication
  9. WELLBUTRIN [Concomitant]
     Active Substance: BUPROPION HYDROCHLORIDE
     Indication: Product used for unknown indication
  10. SYNTHROID [Concomitant]
     Active Substance: LEVOTHYROXINE SODIUM
     Indication: Product used for unknown indication
  11. Prozine [Concomitant]
     Indication: Product used for unknown indication

REACTIONS (11)
  - Nephrolithiasis [Unknown]
  - Frequent bowel movements [Unknown]
  - Nausea [Unknown]
  - Decreased appetite [Unknown]
  - Insomnia [Unknown]
  - Vomiting [Unknown]
  - Constipation [Unknown]
  - Diarrhoea [Unknown]
  - Rash papular [Unknown]
  - Arthralgia [Unknown]
  - Faeces soft [Unknown]
